FAERS Safety Report 19933411 (Version 1)
Quarter: 2021Q4

REPORT INFORMATION
  Report Type: Spontaneous
  Country: HR (occurrence: HR)
  Receive Date: 20211008
  Receipt Date: 20211008
  Transmission Date: 20220304
  Serious: Yes (Hospitalization, Other)
  Sender: FDA-Public Use
  Company Number: HR-GLAXOSMITHKLINE-HRCH2021GSK070201

PATIENT
  Age: 22 Year
  Sex: Female

DRUGS (2)
  1. IBUPROFEN [Suspect]
     Active Substance: IBUPROFEN
     Indication: Flank pain
     Dosage: UNK
  2. TIOPRONIN [Suspect]
     Active Substance: TIOPRONIN
     Indication: Product used for unknown indication
     Dosage: UNK

REACTIONS (8)
  - Tubulointerstitial nephritis [Recovered/Resolved]
  - Nephrotic syndrome [Recovered/Resolved]
  - Eyelid oedema [Recovered/Resolved]
  - Proteinuria [Recovered/Resolved]
  - Hypercholesterolaemia [Recovered/Resolved]
  - Haematuria [Recovered/Resolved]
  - Weight increased [Recovered/Resolved]
  - Peripheral swelling [Recovered/Resolved]
